FAERS Safety Report 8110837-3 (Version None)
Quarter: 2012Q1

REPORT INFORMATION
  Report Type: 
  Country: None (occurrence: None)
  Receive Date: 20120125
  Receipt Date: 20120110
  Transmission Date: 20120608
  Serious: Yes (Hospitalization, Other)
  Sender: FDA-Public Use
  Company Number: 2012030840

PATIENT
  Sex: Female
  Weight: 86.637 kg

DRUGS (1)
  1. CARIMUNE [Suspect]
     Route: 042

REACTIONS (1)
  - MENINGITIS [None]
